FAERS Safety Report 7701503-4 (Version None)
Quarter: 2011Q3

REPORT INFORMATION
  Report Type: 
  Country: None (occurrence: None)
  Receive Date: 20110822
  Receipt Date: 20110818
  Transmission Date: 20111222
  Serious: Yes (Other)
  Sender: FDA-Public Use
  Company Number: CA-MERCK-1108USA02242

PATIENT
  Age: 85 Year
  Sex: Female

DRUGS (1)
  1. COSOPT [Suspect]
     Route: 047

REACTIONS (6)
  - WRIST FRACTURE [None]
  - HAEMORRHAGE INTRACRANIAL [None]
  - NOCTURIA [None]
  - DYSGEUSIA [None]
  - SPINAL FRACTURE [None]
  - FALL [None]
